FAERS Safety Report 5197486-4 (Version None)
Quarter: 2006Q4

REPORT INFORMATION
  Report Type: 
  Country: None (occurrence: None)
  Receive Date: 20060927
  Receipt Date: 20060720
  Transmission Date: 20070319
  Serious: No
  Sender: FDA-Public Use
  Company Number: US-CVT-061567

PATIENT
  Age: 85 Year
  Sex: Female
  Weight: 61.7 kg

DRUGS (13)
  1. RANEXA [Suspect]
     Indication: ANGINA PECTORIS
     Dosage: 500 MG, BID, ORAL
     Route: 048
     Dates: start: 20060614
  2. AMBIEN [Concomitant]
  3. LIPITOR [Concomitant]
  4. ATENOLOL [Concomitant]
  5. PLAVIX [Concomitant]
  6. LORAZEPAM [Concomitant]
  7. ISOSORBIDE (ISOSORBIDE) [Concomitant]
  8. LISINOPRIL [Concomitant]
  9. PEPCID [Concomitant]
  10. FUROSEMIDE [Concomitant]
  11. ASPIRIN [Concomitant]
  12. COENZYME Q10 [Concomitant]
  13. QUININE SULFATE [Concomitant]

REACTIONS (1)
  - THERAPEUTIC RESPONSE UNEXPECTED [None]
